FAERS Safety Report 20159093 (Version 3)
Quarter: 2022Q1

REPORT INFORMATION
  Report Type: Spontaneous
  Country: US (occurrence: None)
  Receive Date: 20211208
  Receipt Date: 20220117
  Transmission Date: 20220423
  Serious: Yes (Other)
  Sender: FDA-Public Use
  Company Number: 2021A832542

PATIENT
  Age: 71 Year
  Sex: Female
  Weight: 77.1 kg

DRUGS (3)
  1. ANASTROZOLE [Suspect]
     Active Substance: ANASTROZOLE
     Indication: Breast cancer
     Route: 048
     Dates: start: 202104
  2. SYMBICORT [Suspect]
     Active Substance: BUDESONIDE\FORMOTEROL FUMARATE DIHYDRATE
     Indication: Asthma
     Dosage: 160/4.5 MCG 120 INHALATIONS
     Route: 055
  3. SYMBICORT [Suspect]
     Active Substance: BUDESONIDE\FORMOTEROL FUMARATE DIHYDRATE
     Indication: Lung disorder
     Dosage: 160/4.5 MCG 120 INHALATIONS
     Route: 055

REACTIONS (9)
  - Bronchiectasis [Unknown]
  - Spinal column injury [Unknown]
  - Breast cancer female [Unknown]
  - Arthralgia [Unknown]
  - Intentional device misuse [Unknown]
  - Product packaging quantity issue [Unknown]
  - Device malfunction [Unknown]
  - Gastrooesophageal reflux disease [Unknown]
  - Illness [Unknown]
